FAERS Safety Report 9202408 (Version 2)
Quarter: 2013Q2

REPORT INFORMATION
  Report Type: Spontaneous
  Country: CA (occurrence: CA)
  Receive Date: 20130401
  Receipt Date: 20130415
  Transmission Date: 20140414
  Serious: Yes (Other)
  Sender: FDA-Public Use
  Company Number: CA-AMGEN-CANSP2013021642

PATIENT
  Age: 63 Year
  Sex: Male
  Weight: 77.27 kg

DRUGS (2)
  1. PROLIA [Suspect]
     Indication: OSTEOPOROSIS
     Dosage: UNK
     Dates: start: 20121012
  2. PROLIA [Suspect]

REACTIONS (2)
  - Rib fracture [Unknown]
  - Injury [Unknown]
